FAERS Safety Report 6714112-0 (Version None)
Quarter: 2010Q2

REPORT INFORMATION
  Report Type: 
  Country: None (occurrence: None)
  Receive Date: 20100506
  Receipt Date: 20100423
  Transmission Date: 20101027
  Serious: Yes (Hospitalization)
  Sender: FDA-Public Use
  Company Number: DE-WATSON-2010-06073

PATIENT

DRUGS (5)
  1. RAMIPRIL [Suspect]
     Indication: CORONARY ARTERY DISEASE
     Dosage: 5 MG, UNK
     Route: 048
     Dates: end: 20070801
  2. METOPROLOL SUCCINATE [Suspect]
     Indication: HYPERTENSION
     Dosage: 47 1/2 MG, UNK
     Route: 048
     Dates: start: 20070801, end: 20081202
  3. HYDROCHLOROTHIAZIDE [Suspect]
     Indication: HYPERTENSION
     Dosage: 12 1/2 MG, UNK
     Route: 048
     Dates: start: 20070801, end: 20081202
  4. ASPIRIN [Concomitant]
     Indication: CORONARY ARTERY DISEASE
     Dosage: 100 MG, UNK
     Route: 048
     Dates: start: 20070801
  5. LOCOL [Concomitant]
     Indication: DYSLIPIDAEMIA
     Dosage: 40 MG, UNK
     Route: 048
     Dates: start: 20070801

REACTIONS (2)
  - BRADYCARDIA [None]
  - HYPOTENSION [None]
